FAERS Safety Report 9261683 (Version 1)
Quarter: 2013Q2

REPORT INFORMATION
  Report Type: Spontaneous
  Country: US (occurrence: US)
  Receive Date: 20130429
  Receipt Date: 20130429
  Transmission Date: 20140414
  Serious: No
  Sender: FDA-Public Use
  Company Number: US-BAYER-2013-053792

PATIENT
  Age: 87 Year
  Sex: Female
  Weight: 58.5 kg

DRUGS (3)
  1. ALEVE TABLET [Suspect]
     Indication: ARTHRITIS
     Dosage: 2-4 DF, OTHER FREQUENCY
     Route: 048
     Dates: start: 2012
  2. CALCIUM [Concomitant]
  3. VITAMIN D [Concomitant]

REACTIONS (2)
  - Incorrect dose administered [None]
  - Incorrect drug administration duration [None]
